FAERS Safety Report 23336690 (Version 1)
Quarter: 2023Q4

REPORT INFORMATION
  Report Type: Spontaneous
  Country: US (occurrence: US)
  Receive Date: 20231226
  Receipt Date: 20231226
  Transmission Date: 20240110
  Serious: No
  Sender: FDA-Public Use
  Company Number: US-SANOFI-01883128

PATIENT
  Sex: Female

DRUGS (2)
  1. REZUROCK [Suspect]
     Active Substance: BELUMOSUDIL
     Dosage: UNK
  2. REZUROCK [Suspect]
     Active Substance: BELUMOSUDIL
     Dosage: 100 MG, QD

REACTIONS (4)
  - Dizziness [Unknown]
  - Headache [Unknown]
  - Drug intolerance [Unknown]
  - Product prescribing error [Unknown]
